FAERS Safety Report 25245689 (Version 1)
Quarter: 2025Q2

REPORT INFORMATION
  Report Type: Spontaneous
  Country: AR (occurrence: AR)
  Receive Date: 20250428
  Receipt Date: 20250428
  Transmission Date: 20250717
  Serious: Yes (Other)
  Sender: NOVARTIS
  Company Number: AR-002147023-NVSC2025AR068362

PATIENT
  Sex: Female

DRUGS (1)
  1. CYCLOSPORINE [Suspect]
     Active Substance: CYCLOSPORINE
     Indication: Colitis ulcerative
     Dosage: 100 MG, QD
     Route: 065
     Dates: start: 202504

REACTIONS (4)
  - Immunodeficiency [Unknown]
  - Skin ulcer [Unknown]
  - Acne [Unknown]
  - Product use in unapproved indication [Unknown]
